FAERS Safety Report 7949620-8 (Version None)
Quarter: 2011Q4

REPORT INFORMATION
  Report Type: 
  Country: None (occurrence: None)
  Receive Date: 20111130
  Receipt Date: 20111121
  Transmission Date: 20120403
  Serious: Yes (Other)
  Sender: FDA-Public Use
  Company Number: BR-B.I. PHARMACEUTICALS,INC./RIDGEFIELD-2011-BR-01246BR

PATIENT
  Age: 82 Year
  Sex: Female

DRUGS (9)
  1. EXCELON [Concomitant]
  2. PRANDIN [Concomitant]
  3. PREDNISONE TAB [Concomitant]
  4. SEROQUEL [Concomitant]
  5. MEMANTINE HYDROCHLORIDE [Concomitant]
  6. PRADAXA [Suspect]
     Indication: THROMBOSIS PROPHYLAXIS
     Route: 048
  7. METFORMIN HCL [Concomitant]
  8. CITALOPRAM [Concomitant]
  9. LEXOTAN [Concomitant]

REACTIONS (1)
  - DEEP VEIN THROMBOSIS [None]
